FAERS Safety Report 17005975 (Version 1)
Quarter: 2019Q4

REPORT INFORMATION
  Report Type: Spontaneous
  Country: US (occurrence: US)
  Receive Date: 20191107
  Receipt Date: 20191107
  Transmission Date: 20200122
  Serious: No
  Sender: FDA-Public Use
  Company Number: US-SA-2019SA045379

PATIENT
  Sex: Female

DRUGS (10)
  1. METHOTREXATE. [Concomitant]
     Active Substance: METHOTREXATE
  2. CLOPIDOGREL [Concomitant]
     Active Substance: CLOPIDOGREL BISULFATE
  3. AMLODIPINE [Concomitant]
     Active Substance: AMLODIPINE BESYLATE
  4. VICTOZA [Concomitant]
     Active Substance: LIRAGLUTIDE
  5. PRALUENT [Suspect]
     Active Substance: ALIROCUMAB
     Indication: TYPE 2 DIABETES MELLITUS
     Dosage: 75 MG, QOW
     Route: 058
     Dates: end: 201907
  6. CAPTOPRIL. [Concomitant]
     Active Substance: CAPTOPRIL
  7. GABAPENTIN. [Concomitant]
     Active Substance: GABAPENTIN
  8. METOPROLOL TARTRATE. [Concomitant]
     Active Substance: METOPROLOL TARTRATE
  9. TRAZODONE [Concomitant]
     Active Substance: TRAZODONE HYDROCHLORIDE
  10. ISOSORBIDE MONONITRATE. [Concomitant]
     Active Substance: ISOSORBIDE MONONITRATE

REACTIONS (2)
  - Product dose omission [Unknown]
  - Product use in unapproved indication [Unknown]

NARRATIVE: CASE EVENT DATE: 2019
